FAERS Safety Report 5607750-X (Version None)
Quarter: 2008Q1

REPORT INFORMATION
  Report Type: 
  Country: None (occurrence: None)
  Receive Date: 20080130
  Receipt Date: 20080123
  Transmission Date: 20080703
  Serious: Yes (Other)
  Sender: FDA-Public Use
  Company Number: US-JNJFOC-20080106420

PATIENT
  Sex: Female
  Weight: 76.2 kg

DRUGS (4)
  1. LEVAQUIN [Suspect]
     Route: 048
  2. LEVAQUIN [Suspect]
     Indication: SINUSITIS
     Route: 048
  3. CYMBALTA [Concomitant]
     Route: 065
  4. VOLTAREN [Concomitant]
     Indication: ANTIINFLAMMATORY THERAPY
     Route: 065

REACTIONS (3)
  - EXOSTOSIS [None]
  - ROTATOR CUFF SYNDROME [None]
  - TENDONITIS [None]
